FAERS Safety Report 7479153-7 (Version None)
Quarter: 2011Q2

REPORT INFORMATION
  Report Type: 
  Country: None (occurrence: None)
  Receive Date: 20110513
  Receipt Date: 20110511
  Transmission Date: 20111010
  Serious: Yes (Hospitalization)
  Sender: FDA-Public Use
  Company Number: CA-BRISTOL-MYERS SQUIBB COMPANY-14952444

PATIENT
  Age: 82 Year
  Sex: Female

DRUGS (15)
  1. VITAMIN C [Concomitant]
  2. NEXIUM [Concomitant]
  3. ASPIRIN [Concomitant]
  4. ORENCIA [Suspect]
     Indication: RHEUMATOID ARTHRITIS
     Dosage: NO OF INFUSON:17,LAST INFUSION ON 26-JAN-2010 THERAPY DATES:28DEC09,19AUG10,03MAR2011,11MAY11
     Route: 042
     Dates: start: 20091228
  5. ELTROXIN [Concomitant]
  6. FUROSEMIDE [Concomitant]
  7. SOFLAX [Concomitant]
  8. VITAMIN D [Concomitant]
  9. FERROUS GLUCONATE [Concomitant]
  10. FOLIC ACID [Concomitant]
  11. LIPITOR [Concomitant]
  12. METHOTREXATE [Concomitant]
  13. HYDROXYCHLOROQUINE [Concomitant]
  14. NORVASC [Concomitant]
  15. COZAAR [Concomitant]

REACTIONS (5)
  - PNEUMONIA [None]
  - PULMONARY OEDEMA [None]
  - LOWER RESPIRATORY TRACT INFECTION [None]
  - WHEEZING [None]
  - FATIGUE [None]
